FAERS Safety Report 7256417-3 (Version None)
Quarter: 2011Q1

REPORT INFORMATION
  Report Type: 
  Country: None (occurrence: None)
  Receive Date: 20110129
  Receipt Date: 20100723
  Transmission Date: 20110831
  Serious: No
  Sender: FDA-Public Use
  Company Number: US-ABBOTT-10P-163-0659110-00

PATIENT
  Sex: Male
  Weight: 67.192 kg

DRUGS (3)
  1. HUMIRA [Suspect]
     Indication: HIDRADENITIS
     Dates: start: 20091002, end: 20100215
  2. BACTRIM [Concomitant]
     Indication: HIDRADENITIS
     Dates: start: 20100215, end: 20100401
  3. ACCUTANE [Concomitant]
     Indication: HIDRADENITIS

REACTIONS (1)
  - CYST [None]
